FAERS Safety Report 4817141-7 (Version None)
Quarter: 2005Q4

REPORT INFORMATION
  Report Type: 
  Country: None (occurrence: None)
  Receive Date: 20051101
  Receipt Date: 20051026
  Transmission Date: 20060501
  Serious: Yes (Hospitalization)
  Sender: FDA-Public Use
  Company Number: FR-ROCHE-422479

PATIENT
  Age: 76 Year
  Sex: Female

DRUGS (7)
  1. ROCEPHIN [Suspect]
     Indication: PYELONEPHRITIS
     Route: 065
     Dates: start: 20050530, end: 20050607
  2. CIPROFLOXACIN [Suspect]
     Indication: DRUG USE FOR UNKNOWN INDICATION
     Route: 065
     Dates: start: 20050602, end: 20050607
  3. FLUDEX [Concomitant]
     Route: 048
  4. BISOPROLOL [Concomitant]
     Route: 048
  5. KARDEGIC [Concomitant]
     Route: 048
  6. VASTAREL [Concomitant]
     Route: 048
  7. LASILIX [Concomitant]
     Dates: end: 20050607

REACTIONS (8)
  - CHEILITIS [None]
  - DEHYDRATION [None]
  - GLOMERULONEPHRITIS [None]
  - LEUKOCYTOSIS [None]
  - PYREXIA [None]
  - RENAL FAILURE [None]
  - RENAL TUBULAR DISORDER [None]
  - TOXIC SKIN ERUPTION [None]
